FAERS Safety Report 9580344 (Version 1)
Quarter: 2013Q3

REPORT INFORMATION
  Report Type: Spontaneous
  Country: GB (occurrence: None)
  Receive Date: 20130930
  Receipt Date: 20130930
  Transmission Date: 20140515
  Serious: Yes (Other)
  Sender: FDA-Public Use
  Company Number: GER/UKI/13/0034706

PATIENT
  Sex: Male

DRUGS (1)
  1. SILDENAFIL [Suspect]
     Indication: PRODUCT USED FOR UNKNOWN INDICATION
     Dosage: 1 DOSAGE FORMS, 1 IN 1 TOTAL
     Dates: start: 20130908, end: 20130908

REACTIONS (4)
  - Blood pressure decreased [None]
  - Malaise [None]
  - Headache [None]
  - Atrial fibrillation [None]
